FAERS Safety Report 8975524 (Version 1)
Quarter: 2012Q4

REPORT INFORMATION
  Report Type: 
  Country: GB (occurrence: GB)
  Receive Date: 20121219
  Receipt Date: 20121219
  Transmission Date: 20130627
  Serious: Yes (Other)
  Sender: FDA-Public Use
  Company Number: GB-ALLERGAN-1217435US

PATIENT
  Age: 83 Year
  Sex: Female

DRUGS (1)
  1. BRIMONIDINE [Suspect]
     Indication: GLAUCOMA
     Dosage: 1 Gtt, bid
     Dates: start: 20111216, end: 20121116

REACTIONS (3)
  - Uveitis [Recovering/Resolving]
  - Inflammation [Recovered/Resolved]
  - Drug ineffective [Unknown]
